FAERS Safety Report 7118366-0 (Version None)
Quarter: 2010Q4

REPORT INFORMATION
  Report Type: 
  Country: None (occurrence: None)
  Receive Date: 20101123
  Receipt Date: 20101112
  Transmission Date: 20110411
  Serious: No
  Sender: FDA-Public Use
  Company Number: AU-JNJFOC-20101105232

PATIENT
  Sex: Female

DRUGS (3)
  1. DURAGESIC-100 [Suspect]
     Indication: PAIN
     Route: 062
  2. DURAGESIC-100 [Suspect]
     Route: 062
  3. PAIN MEDICATION (NOS) [Concomitant]
     Indication: PAIN
     Route: 065

REACTIONS (5)
  - APPLICATION SITE RASH [None]
  - INAPPROPRIATE SCHEDULE OF DRUG ADMINISTRATION [None]
  - PRODUCT ADHESION ISSUE [None]
  - RASH PRURITIC [None]
  - WRONG TECHNIQUE IN DRUG USAGE PROCESS [None]
